FAERS Safety Report 8265667-9 (Version None)
Quarter: 2012Q2

REPORT INFORMATION
  Report Type: 
  Country: None (occurrence: None)
  Receive Date: 20120406
  Receipt Date: 20120403
  Transmission Date: 20120825
  Serious: No
  Sender: FDA-Public Use
  Company Number: BR-PFIZER INC-2012059591

PATIENT
  Age: 76 Year
  Sex: Female

DRUGS (1)
  1. LIPITOR [Suspect]
     Indication: BLOOD CHOLESTEROL INCREASED
     Dosage: 20 MG (ONE TABLET), ONCE DAILY
     Route: 048
     Dates: start: 20120206

REACTIONS (1)
  - NO ADVERSE EVENT [None]
